FAERS Safety Report 25050281 (Version 3)
Quarter: 2025Q2

REPORT INFORMATION
  Report Type: Spontaneous
  Country: CA (occurrence: CA)
  Receive Date: 20250307
  Receipt Date: 20250509
  Transmission Date: 20250716
  Serious: Yes (Other)
  Sender: CELLTRION
  Company Number: CA-PFIZER INC-PV202500025642

PATIENT

DRUGS (2)
  1. INFLECTRA [Suspect]
     Active Substance: INFLIXIMAB-DYYB
     Indication: Crohn^s disease
     Route: 042
     Dates: start: 20250129
  2. INFLECTRA [Suspect]
     Active Substance: INFLIXIMAB-DYYB
     Route: 042
     Dates: start: 20250227, end: 20250227

REACTIONS (4)
  - Blindness unilateral [Recovered/Resolved]
  - Optic neuritis [Recovered/Resolved]
  - Multiple sclerosis [Unknown]
  - Lyme disease [Unknown]

NARRATIVE: CASE EVENT DATE: 20250201
